FAERS Safety Report 23517883 (Version 2)
Quarter: 2024Q1

REPORT INFORMATION
  Report Type: Spontaneous
  Country: ES (occurrence: ES)
  Receive Date: 20240213
  Receipt Date: 20240308
  Transmission Date: 20240410
  Serious: Yes (Death, Hospitalization, Other)
  Sender: FDA-Public Use
  Company Number: ES-KRKA-ES2024K01659LIT

PATIENT
  Sex: Male

DRUGS (2)
  1. SUNITINIB [Suspect]
     Active Substance: SUNITINIB
     Indication: Gastrointestinal stromal tumour
     Dosage: (SECOND LINE TREATMENT)
     Route: 065
  2. IMATINIB [Suspect]
     Active Substance: IMATINIB
     Indication: Gastrointestinal stromal tumour
     Dosage: 400 MILLIGRAM, QD (PER DAY)
     Route: 065

REACTIONS (3)
  - Drug resistance [Fatal]
  - Neoplasm progression [Unknown]
  - Gastrointestinal stromal tumour [Unknown]
